FAERS Safety Report 9275090 (Version 2)
Quarter: 2013Q2

REPORT INFORMATION
  Report Type: Spontaneous
  Country: US (occurrence: None)
  Receive Date: 20130430
  Receipt Date: 20130628
  Transmission Date: 20140414
  Serious: Yes (Hospitalization, Other)
  Sender: FDA-Public Use
  Company Number: ADR-2013-00726

PATIENT
  Age: 53 Year
  Sex: Female

DRUGS (2)
  1. BACLOFEN INTRATHECAL [Suspect]
     Indication: PAIN
  2. BUPIVACAINE [Concomitant]

REACTIONS (8)
  - Dry mouth [None]
  - Feeling abnormal [None]
  - Hypoaesthesia oral [None]
  - Cyanosis [None]
  - Unresponsive to stimuli [None]
  - Device deployment issue [None]
  - Device leakage [None]
  - Overdose [None]
